FAERS Safety Report 16599110 (Version 1)
Quarter: 2019Q3

REPORT INFORMATION
  Report Type: Spontaneous
  Country: JP (occurrence: JP)
  Receive Date: 20190719
  Receipt Date: 20190719
  Transmission Date: 20191004
  Serious: Yes (Death, Other)
  Sender: FDA-Public Use
  Company Number: JP-BAYER-2019-043318

PATIENT
  Age: 77 Year
  Sex: Male
  Weight: 49.8 kg

DRUGS (8)
  1. SENNOSIDE A+B CALCIUM [Concomitant]
     Active Substance: SENNOSIDES A AND B
     Indication: CONSTIPATION
     Dosage: DAILY DOSE 24 MG
  2. LOPERAMIDE HYDROCHLORIDE. [Concomitant]
     Active Substance: LOPERAMIDE HYDROCHLORIDE
     Indication: DIARRHOEA
     Dosage: DAILY DOSE 2 MG
  3. LANSOPRAZOLE. [Concomitant]
     Active Substance: LANSOPRAZOLE
     Indication: GASTROOESOPHAGEAL REFLUX DISEASE
     Dosage: DAILY DOSE 15 MG
     Dates: end: 20190219
  4. TAKECAB [Concomitant]
     Active Substance: VONOPRAZAN FUMURATE
     Dosage: UNK
     Dates: start: 20190220
  5. NEXAVAR [Suspect]
     Active Substance: SORAFENIB
     Indication: HEPATOCELLULAR CARCINOMA
     Dosage: 200 MG, BID
     Route: 048
     Dates: start: 20190117, end: 20190220
  6. EDIROL [Concomitant]
     Active Substance: ELDECALCITOL
     Indication: OSTEOPOROSIS
     Dosage: DAILY DOSE .75 ?G
  7. POTASSIUM L ASPARTATE K [Concomitant]
     Active Substance: POTASSIUM ASPARTATE
     Indication: OSTEOPOROSIS
     Dosage: DAILY DOSE 1200 MG
  8. LUNESTA [Concomitant]
     Active Substance: ESZOPICLONE
     Indication: INSOMNIA
     Dosage: DAILY DOSE 1 MG

REACTIONS (11)
  - Gastritis erosive [None]
  - Clavicle fracture [Recovering/Resolving]
  - Cholelithiasis [None]
  - Acute interstitial pneumonitis [Fatal]
  - Interstitial lung disease [None]
  - Splenomegaly [None]
  - Metastases to lymph nodes [None]
  - Gastric ulcer haemorrhage [Recovered/Resolved]
  - Rib fracture [Recovering/Resolving]
  - Pelvic fracture [Recovering/Resolving]
  - Anaemia [None]

NARRATIVE: CASE EVENT DATE: 20190220
